FAERS Safety Report 5927852-8 (Version None)
Quarter: 2008Q4

REPORT INFORMATION
  Report Type: 
  Country: None (occurrence: None)
  Receive Date: 20081023
  Receipt Date: 20081014
  Transmission Date: 20090506
  Serious: Yes (Hospitalization)
  Sender: FDA-Public Use
  Company Number: JP-AMGEN-US314191

PATIENT
  Sex: Female

DRUGS (2)
  1. ENBREL [Suspect]
     Indication: RHEUMATOID ARTHRITIS
     Route: 058
  2. BREDININ [Concomitant]
     Dosage: UNSPECIFIED
     Route: 048

REACTIONS (3)
  - ILEUS [None]
  - INTESTINAL PERFORATION [None]
  - SEPSIS [None]
